FAERS Safety Report 5227948-2 (Version None)
Quarter: 2007Q1

REPORT INFORMATION
  Report Type: 
  Country: None (occurrence: None)
  Receive Date: 20061201
  Receipt Date: 20060525
  Transmission Date: 20070707
  Serious: Yes (Hospitalization)
  Sender: FDA-Public Use
  Company Number: 2006-143185-NL

PATIENT
  Age: 36 Year
  Sex: Female
  Weight: 91.6 kg

DRUGS (3)
  1. NUVARING [Suspect]
     Indication: CONTRACEPTION
     Dosage: VAGINAL, 1 EVERY MONTH
     Dates: end: 20060525
  2. NUVARING [Suspect]
     Indication: MENOMETRORRHAGIA
     Dosage: VAGINAL, 1 EVERY MONTH
     Dates: end: 20060525
  3. IBUPROFEN [Concomitant]

REACTIONS (2)
  - DEEP VEIN THROMBOSIS [None]
  - PULMONARY EMBOLISM [None]
